FAERS Safety Report 12906482 (Version 1)
Quarter: 2016Q4

REPORT INFORMATION
  Report Type: Spontaneous
  Country: TW (occurrence: TW)
  Receive Date: 20161103
  Receipt Date: 20161103
  Transmission Date: 20170207
  Serious: Yes (Other)
  Sender: FDA-Public Use
  Company Number: TW-B.I. PHARMACEUTICALS,INC./RIDGEFIELD-2016-BI-069235

PATIENT
  Age: 59 Year
  Sex: Male

DRUGS (4)
  1. GLIMET [Concomitant]
     Indication: DIABETES MELLITUS
     Route: 048
     Dates: start: 20151201, end: 20160711
  2. PIOGLITAZONE. [Concomitant]
     Active Substance: PIOGLITAZONE
     Indication: DIABETES MELLITUS
     Route: 048
     Dates: start: 20151201, end: 20160711
  3. CANDESARTAN [Concomitant]
     Active Substance: CANDESARTAN
     Indication: PROTEINURIA
     Route: 048
     Dates: start: 20151201, end: 20160711
  4. JARDIANCE [Suspect]
     Active Substance: EMPAGLIFLOZIN
     Indication: DIABETES MELLITUS
     Route: 048
     Dates: start: 20160531, end: 20160627

REACTIONS (1)
  - Acute kidney injury [Unknown]

NARRATIVE: CASE EVENT DATE: 20160628
